FAERS Safety Report 13127925 (Version 1)
Quarter: 2017Q1

REPORT INFORMATION
  Report Type: Spontaneous
  Country: US (occurrence: US)
  Receive Date: 20170118
  Receipt Date: 20170118
  Transmission Date: 20170428
  Serious: Yes (Other)
  Sender: FDA-Public Use
  Company Number: US-NOVOPROD-515188

PATIENT
  Age: 78 Year
  Sex: Male
  Weight: 102.4 kg

DRUGS (6)
  1. HUMALOG [Suspect]
     Active Substance: INSULIN LISPRO
     Dosage: SLIDING SCALE
     Route: 058
     Dates: start: 20161008
  2. TRESIBA FLEXTOUCH U200 [Suspect]
     Active Substance: INSULIN DEGLUDEC
     Indication: TYPE 2 DIABETES MELLITUS
     Dosage: 54 U, QD
     Route: 058
     Dates: start: 2016, end: 20161006
  3. HUMALOG [Suspect]
     Active Substance: INSULIN LISPRO
     Indication: TYPE 2 DIABETES MELLITUS
     Dosage: SLIDING SCALE
     Route: 058
     Dates: end: 20161006
  4. TRESIBA FLEXTOUCH U200 [Suspect]
     Active Substance: INSULIN DEGLUDEC
     Dosage: UNK
     Dates: start: 20161007, end: 20161007
  5. TRESIBA FLEXTOUCH U200 [Suspect]
     Active Substance: INSULIN DEGLUDEC
     Dosage: 54 U, QD
     Route: 058
     Dates: start: 20161008
  6. HUMALOG [Suspect]
     Active Substance: INSULIN LISPRO
     Dosage: 54 U, SINGLE
     Route: 058
     Dates: start: 20161007, end: 20161007

REACTIONS (3)
  - Wrong drug administered [Recovered/Resolved]
  - Blood glucose decreased [Recovered/Resolved]
  - Product packaging confusion [Not Recovered/Not Resolved]

NARRATIVE: CASE EVENT DATE: 20161007
